FAERS Safety Report 25602207 (Version 1)
Quarter: 2025Q3

REPORT INFORMATION
  Report Type: Spontaneous
  Country: EU (occurrence: EU)
  Receive Date: 20250724
  Receipt Date: 20250724
  Transmission Date: 20251020
  Serious: Yes (Other)
  Sender: NOVARTIS
  Company Number: EU-002147023-NVSC2025RO117146

PATIENT
  Age: 67 Year
  Sex: Female

DRUGS (1)
  1. SCEMBLIX [Suspect]
     Active Substance: ASCIMINIB HYDROCHLORIDE
     Indication: Product used for unknown indication
     Dosage: 40 MG, BID
     Route: 065
     Dates: start: 202403

REACTIONS (5)
  - Herpes zoster [Unknown]
  - Thrombocytopenia [Unknown]
  - Philadelphia chromosome positive [Unknown]
  - Tooth abscess [Unknown]
  - Transaminases increased [Unknown]

NARRATIVE: CASE EVENT DATE: 20241001
